FAERS Safety Report 7183663-X (Version None)
Quarter: 2010Q4

REPORT INFORMATION
  Report Type: 
  Country: None (occurrence: None)
  Receive Date: 20101222
  Receipt Date: 20101215
  Transmission Date: 20110411
  Serious: Yes (Hospitalization)
  Sender: FDA-Public Use
  Company Number: FR-KINGPHARMUSA00001-K201001441

PATIENT
  Age: 69 Year
  Sex: Female

DRUGS (5)
  1. ALTACE [Suspect]
     Dosage: 2.5 MG, QD
     Route: 048
     Dates: start: 20100101, end: 20100713
  2. BUPROPION [Suspect]
     Dosage: 75 MG, QD
     Route: 048
     Dates: end: 20100708
  3. ACETYLSALICYLIC ACID [Concomitant]
     Dosage: UNK
     Dates: start: 20100101
  4. VALSARTAN [Concomitant]
     Dosage: UNK
     Dates: start: 20100101
  5. ALLOPURINOL [Concomitant]
     Dosage: UNK
     Dates: start: 20100101

REACTIONS (4)
  - DERMATITIS ALLERGIC [None]
  - ERYTHEMA [None]
  - PRURITUS [None]
  - SUPERINFECTION [None]
